FAERS Safety Report 23655822 (Version 1)
Quarter: 2024Q1

REPORT INFORMATION
  Report Type: Spontaneous
  Country: HR (occurrence: HR)
  Receive Date: 20240321
  Receipt Date: 20240321
  Transmission Date: 20240410
  Serious: Yes (Death, Other)
  Sender: FDA-Public Use
  Company Number: HR-009507513-2401HRV012545

PATIENT
  Age: 53 Year
  Sex: Female

DRUGS (3)
  1. KEYTRUDA [Suspect]
     Active Substance: PEMBROLIZUMAB
     Dosage: TOTAL 2 CYCLES
  2. PACLITAXEL [Suspect]
     Active Substance: PACLITAXEL
     Dosage: TOTAL 2 CYCLES
  3. CARBOPLATIN [Suspect]
     Active Substance: CARBOPLATIN
     Dosage: TOTAL 2 CYCLES

REACTIONS (4)
  - Death [Fatal]
  - Pleural effusion [Unknown]
  - Oedema peripheral [Unknown]
  - Pyrexia [Unknown]

NARRATIVE: CASE EVENT DATE: 20240317
